FAERS Safety Report 23445915 (Version 1)
Quarter: 2024Q1

REPORT INFORMATION
  Report Type: Spontaneous
  Country: LT (occurrence: None)
  Receive Date: 20240126
  Receipt Date: 20240126
  Transmission Date: 20240410
  Serious: Yes (Death)
  Sender: FDA-Public Use
  Company Number: 2024A017757

PATIENT
  Age: 84 Year
  Sex: Male
  Weight: 97 kg

DRUGS (2)
  1. QUETIAPINE FUMARATE [Suspect]
     Active Substance: QUETIAPINE FUMARATE
     Dosage: NOT EXACTLY KNOWN, BUT LIKELY TAKING 1 TABLET A DAY
     Route: 048
     Dates: start: 20231218
  2. XARELTO [Concomitant]
     Active Substance: RIVAROXABAN
     Dosage: UNKNOWN

REACTIONS (1)
  - Completed suicide [Fatal]

NARRATIVE: CASE EVENT DATE: 20240107
